FAERS Safety Report 14627817 (Version 4)
Quarter: 2019Q3

REPORT INFORMATION
  Report Type: Report from Study
  Country: CA (occurrence: CA)
  Receive Date: 20180312
  Receipt Date: 20190708
  Transmission Date: 20191004
  Serious: Yes (Hospitalization, Other)
  Sender: FDA-Public Use
  Company Number: CA-JNJFOC-20180201058

PATIENT
  Age: 55 Year
  Sex: Female

DRUGS (2)
  1. STELARA [Suspect]
     Active Substance: USTEKINUMAB
     Indication: PSORIASIS
     Dosage: STRENGTH = 90 MG
     Route: 058
     Dates: start: 20111026
  2. STELARA [Suspect]
     Active Substance: USTEKINUMAB
     Indication: PSORIATIC ARTHROPATHY
     Dosage: STRENGTH = 90 MG
     Route: 058
     Dates: start: 2011

REACTIONS (6)
  - Loss of consciousness [Recovered/Resolved]
  - Benign neoplasm of thyroid gland [Recovering/Resolving]
  - Haemoglobin decreased [Unknown]
  - Papillary thyroid cancer [Recovering/Resolving]
  - Pulmonary embolism [Recovering/Resolving]
  - Haematoma [Recovering/Resolving]

NARRATIVE: CASE EVENT DATE: 2018
